FAERS Safety Report 9638170 (Version 1)
Quarter: 2013Q4

REPORT INFORMATION
  Report Type: Spontaneous
  Country: US (occurrence: US)
  Receive Date: 20131022
  Receipt Date: 20131022
  Transmission Date: 20140711
  Serious: No
  Sender: FDA-Public Use
  Company Number: US-PFIZER INC-2013299057

PATIENT
  Age: 32 Year
  Sex: Female
  Weight: 68.03 kg

DRUGS (1)
  1. ALSUMA [Suspect]
     Indication: MIGRAINE
     Dosage: 6 MG, UNK
     Dates: start: 20131016

REACTIONS (3)
  - Injection site urticaria [Not Recovered/Not Resolved]
  - Injection site erythema [Not Recovered/Not Resolved]
  - Injection site swelling [Not Recovered/Not Resolved]
